FAERS Safety Report 7610736-7 (Version None)
Quarter: 2011Q3

REPORT INFORMATION
  Report Type: 
  Country: None (occurrence: None)
  Receive Date: 20110715
  Receipt Date: 20110707
  Transmission Date: 20111222
  Serious: Yes (Hospitalization, Other)
  Sender: FDA-Public Use
  Company Number: US-ELI_LILLY_AND_COMPANY-US201002003701

PATIENT
  Sex: Male
  Weight: 106.58 kg

DRUGS (3)
  1. BYETTA [Suspect]
     Dosage: 5 UG, BID
     Route: 065
     Dates: start: 20060814, end: 20080505
  2. GLIMEPIRIDE [Concomitant]
     Indication: DIABETES MELLITUS
     Dosage: UNK, UNKNOWN
     Dates: start: 20060101, end: 20060713
  3. JANUVIA [Concomitant]
     Indication: DIABETES MELLITUS
     Dosage: UNK, UNKNOWN
     Dates: start: 20080312, end: 20080814

REACTIONS (5)
  - CHOLELITHIASIS [None]
  - PANCREATIC CARCINOMA [None]
  - CHRONIC LYMPHOCYTIC LEUKAEMIA [None]
  - WEIGHT DECREASED [None]
  - RENAL FAILURE [None]
